FAERS Safety Report 25363623 (Version 5)
Quarter: 2025Q3

REPORT INFORMATION
  Report Type: Spontaneous
  Country: JP (occurrence: JP)
  Receive Date: 20250527
  Receipt Date: 20250709
  Transmission Date: 20251020
  Serious: No
  Sender: PFIZER
  Company Number: JP-PFIZER INC-PV202500047794

PATIENT
  Sex: Female

DRUGS (1)
  1. ENBREL [Suspect]
     Active Substance: ETANERCEPT
     Dosage: 1 ML, 2X/WEEK
     Route: 058

REACTIONS (3)
  - Off label use [Unknown]
  - Needle issue [Unknown]
  - Device delivery system issue [Unknown]
